FAERS Safety Report 4270132-X (Version None)
Quarter: 2004Q1

REPORT INFORMATION
  Report Type: 
  Country: None (occurrence: None)
  Receive Date: 20040112
  Receipt Date: 20040112
  Transmission Date: 20041129
  Serious: Yes (Hospitalization)
  Sender: FDA-Public Use
  Company Number: None

PATIENT
  Age: 56 Year
  Sex: Male

DRUGS (2)
  1. CLONIDINE [Suspect]
     Indication: HYPERTENSION
     Dosage: 0.2 MG TID
     Dates: start: 20010701
  2. DILTIAZEM [Suspect]
     Indication: HYPERTENSION
     Dosage: 360 MG QD
     Dates: start: 20010501

REACTIONS (3)
  - BRADYCARDIA [None]
  - DYSARTHRIA [None]
  - HYPOTENSION [None]
